FAERS Safety Report 4591925-5 (Version None)
Quarter: 2005Q1

REPORT INFORMATION
  Report Type: 
  Country: None (occurrence: None)
  Receive Date: 20050222
  Receipt Date: 20041108
  Transmission Date: 20050727
  Serious: Yes (Other)
  Sender: FDA-Public Use
  Company Number: 2004089605

PATIENT
  Age: 53 Year
  Sex: Male
  Weight: 73.4827 kg

DRUGS (4)
  1. CELEBREX [Suspect]
     Indication: OSTEOARTHRITIS
     Dosage: 400 MG (200 MG, 1 IN 2 D), ORAL
     Route: 048
  2. CARISOPRODOLOL (CARISOPRODOL) [Concomitant]
  3. HYDROCODONE BITARTRATE [Concomitant]
  4. ASPIRIN [Concomitant]

REACTIONS (4)
  - DRUG INEFFECTIVE [None]
  - INADEQUATE ANALGESIA [None]
  - INTERVERTEBRAL DISC DEGENERATION [None]
  - UNEVALUABLE EVENT [None]
